FAERS Safety Report 23074954 (Version 2)
Quarter: 2023Q4

REPORT INFORMATION
  Report Type: Spontaneous
  Country: DE (occurrence: DE)
  Receive Date: 20231017
  Receipt Date: 20231020
  Transmission Date: 20240110
  Serious: Yes (Other)
  Sender: FDA-Public Use
  Company Number: None

PATIENT
  Age: 23 Year
  Sex: Female
  Weight: 65 kg

DRUGS (1)
  1. CYTOTEC [Suspect]
     Active Substance: MISOPROSTOL
     Indication: Labour induction
     Dosage: 25 UG, 3X/DAY AT 10:01, 13:59 AND 17:21
     Route: 048
     Dates: start: 20170915, end: 20170915

REACTIONS (7)
  - Loss of consciousness [Recovering/Resolving]
  - Pyrexia [Recovering/Resolving]
  - Somnolence [Recovering/Resolving]
  - Uterine tachysystole [Recovering/Resolving]
  - Chills [Recovering/Resolving]
  - Memory impairment [Recovering/Resolving]
  - Off label use [Unknown]
